FAERS Safety Report 9049588 (Version 2)
Quarter: 2013Q1

REPORT INFORMATION
  Report Type: Report from Study
  Country: CA (occurrence: CA)
  Receive Date: 20130205
  Receipt Date: 20130206
  Transmission Date: 20140127
  Serious: Yes (Other)
  Sender: FDA-Public Use
  Company Number: CA-ROCHE-1186960

PATIENT
  Sex: Male
  Weight: 78 kg

DRUGS (5)
  1. AVASTIN [Suspect]
     Indication: COLORECTAL CANCER
     Route: 042
     Dates: start: 201201, end: 20130123
  2. AMLODIPINE [Concomitant]
  3. FOLINIC ACID [Concomitant]
     Indication: CHEMOTHERAPY
  4. FLUOROURACIL [Concomitant]
     Indication: CHEMOTHERAPY
  5. IRINOTECAN HYDROCHLORIDE [Concomitant]
     Indication: CHEMOTHERAPY

REACTIONS (1)
  - Disease progression [Unknown]
